FAERS Safety Report 25877235 (Version 1)
Quarter: 2025Q4

REPORT INFORMATION
  Report Type: Spontaneous
  Country: US (occurrence: US)
  Receive Date: 20251003
  Receipt Date: 20251003
  Transmission Date: 20260117
  Serious: Yes (Other)
  Sender: MYLAN
  Company Number: US-MYLANLABS-2025M1083057

PATIENT
  Age: 18 Year
  Sex: Male

DRUGS (16)
  1. COLCHICINE [Suspect]
     Active Substance: COLCHICINE
     Indication: Paediatric acute-onset neuropsychiatric syndrome
     Dosage: 0.6 MILLIGRAM, BID
  2. COLCHICINE [Suspect]
     Active Substance: COLCHICINE
     Dosage: INCREASED, THREE TIME DAILY
  3. ANAKINRA [Suspect]
     Active Substance: ANAKINRA
     Indication: Paediatric acute-onset neuropsychiatric syndrome
     Dosage: UNK
  4. PAXLOVID [Suspect]
     Active Substance: NIRMATRELVIR\RITONAVIR
     Indication: COVID-19
     Dosage: UNK
  5. LACOSAMIDE [Concomitant]
     Active Substance: LACOSAMIDE
     Indication: Generalised tonic-clonic seizure
     Dosage: UNK
  6. LAMOTRIGINE [Concomitant]
     Active Substance: LAMOTRIGINE
     Indication: Generalised tonic-clonic seizure
     Dosage: UNK
  7. AZITHROMYCIN [Concomitant]
     Active Substance: AZITHROMYCIN
     Indication: Paediatric acute-onset neuropsychiatric syndrome
     Dosage: UNK
  8. AZITHROMYCIN [Concomitant]
     Active Substance: AZITHROMYCIN
     Indication: Encephalitis autoimmune
  9. AMOXICILLIN [Concomitant]
     Active Substance: AMOXICILLIN
     Indication: Paediatric acute-onset neuropsychiatric syndrome
     Dosage: UNK
  10. AMOXICILLIN [Concomitant]
     Active Substance: AMOXICILLIN
     Indication: Encephalitis autoimmune
  11. CEFDINIR [Concomitant]
     Active Substance: CEFDINIR
     Indication: Paediatric acute-onset neuropsychiatric syndrome
     Dosage: UNK
  12. CEFDINIR [Concomitant]
     Active Substance: CEFDINIR
     Indication: Encephalitis autoimmune
  13. CELECOXIB [Concomitant]
     Active Substance: CELECOXIB
     Indication: Paediatric acute-onset neuropsychiatric syndrome
     Dosage: UNK
  14. CELECOXIB [Concomitant]
     Active Substance: CELECOXIB
     Indication: Encephalitis autoimmune
  15. MINOCYCLINE [Concomitant]
     Active Substance: MINOCYCLINE HYDROCHLORIDE
     Indication: Paediatric acute-onset neuropsychiatric syndrome
     Dosage: UNK
  16. MINOCYCLINE [Concomitant]
     Active Substance: MINOCYCLINE HYDROCHLORIDE
     Indication: Encephalitis autoimmune

REACTIONS (2)
  - Drug ineffective for unapproved indication [Unknown]
  - Off label use [Unknown]
